FAERS Safety Report 4340275-0 (Version None)
Quarter: 2004Q2

REPORT INFORMATION
  Report Type: 
  Country: None (occurrence: None)
  Receive Date: 20040412
  Receipt Date: 20040401
  Transmission Date: 20050107
  Serious: Yes (Other)
  Sender: FDA-Public Use
  Company Number: IT-JNJFOC-20040400688

PATIENT
  Age: 39 Year
  Sex: Female

DRUGS (1)
  1. REMICADE [Suspect]
     Dosage: 200 MG , INTRAVENOUS
     Route: 042
     Dates: start: 20011216, end: 20021216

REACTIONS (1)
  - ANAPHYLACTIC SHOCK [None]
